FAERS Safety Report 5116972-6 (Version None)
Quarter: 2006Q3

REPORT INFORMATION
  Report Type: 
  Country: None (occurrence: None)
  Receive Date: 20060922
  Receipt Date: 20060913
  Transmission Date: 20061208
  Serious: No
  Sender: FDA-Public Use
  Company Number: 2006-148038-NL

PATIENT
  Age: 63 Year
  Sex: Female

DRUGS (4)
  1. MIRTAZAPINE [Suspect]
     Indication: MAJOR DEPRESSION
     Dosage: 30 MG QD ORAL
     Route: 048
     Dates: start: 20060202, end: 20060711
  2. ALPRAZOLAM [Concomitant]
  3. NICERGOLINE [Concomitant]
  4. PROPRANOLOL [Concomitant]

REACTIONS (5)
  - CONDITION AGGRAVATED [None]
  - DEPRESSION [None]
  - DIABETES MELLITUS NON-INSULIN-DEPENDENT [None]
  - FATIGUE [None]
  - WEIGHT INCREASED [None]
